FAERS Safety Report 7003744-0 (Version None)
Quarter: 2010Q3

REPORT INFORMATION
  Report Type: 
  Country: None (occurrence: None)
  Receive Date: 20100917
  Receipt Date: 20100910
  Transmission Date: 20110219
  Serious: Yes (Death, Hospitalization, Other)
  Sender: FDA-Public Use
  Company Number: 2010US003090

PATIENT
  Age: 61 Year
  Sex: Male

DRUGS (7)
  1. PROGRAF [Suspect]
     Indication: LIVER TRANSPLANT
     Dosage: 1MG, BID, ORAL; 1 MG AM/0.5 MG PM, ORAL
     Route: 048
  2. MYFORTIC [Concomitant]
  3. REGLAN [Concomitant]
  4. LACTULOSE [Concomitant]
  5. NOVOLOG [Concomitant]
  6. DILTIAZEM [Concomitant]
  7. PROMETHAZINE [Concomitant]

REACTIONS (13)
  - ATRIAL FIBRILLATION [None]
  - CARDIAC FAILURE CONGESTIVE [None]
  - CORONARY ARTERY DISEASE [None]
  - ESCHERICHIA TEST POSITIVE [None]
  - HYPERLIPIDAEMIA [None]
  - HYPOTENSION [None]
  - NEUROMYOPATHY [None]
  - PLEURAL EFFUSION [None]
  - RENAL FAILURE CHRONIC [None]
  - RESPIRATORY FAILURE [None]
  - SEPSIS [None]
  - TYPE 2 DIABETES MELLITUS [None]
  - URINARY TRACT INFECTION BACTERIAL [None]
